FAERS Safety Report 9667991 (Version 1)
Quarter: 2013Q4

REPORT INFORMATION
  Report Type: Spontaneous
  Country: US (occurrence: None)
  Receive Date: 20131101
  Receipt Date: 20131101
  Transmission Date: 20140711
  Serious: Yes (Other)
  Sender: FDA-Public Use
  Company Number: 2013-US-002327

PATIENT
  Age: 58 Year
  Sex: Female
  Weight: 63.5 kg

DRUGS (4)
  1. XYREM (SODIUM OXYBATE) ORAL SOLUTION, 500 MG/ML [Suspect]
     Indication: INSOMNIA
     Route: 048
     Dates: start: 200802, end: 2008
  2. HYDROCHLOROTHIAZIDE [Concomitant]
  3. DILTIAZEM [Concomitant]
  4. VIVELLE DOT (ESTRADIOL) TRANS-THERAPEUTIC-SYSTEM [Concomitant]

REACTIONS (2)
  - Developmental hip dysplasia [None]
  - Hip arthroplasty [None]
